FAERS Safety Report 7474708-8 (Version None)
Quarter: 2011Q2

REPORT INFORMATION
  Report Type: 
  Country: None (occurrence: None)
  Receive Date: 20110512
  Receipt Date: 20110429
  Transmission Date: 20111010
  Serious: Yes (Hospitalization)
  Sender: FDA-Public Use
  Company Number: DK-RANBAXY-2011RR-43646

PATIENT
  Sex: Male

DRUGS (3)
  1. SANDIMMUNE [Suspect]
     Indication: APLASTIC ANAEMIA
     Dosage: 100 MG, BID
     Route: 065
     Dates: start: 20090807, end: 20090929
  2. SIMVASTATIN [Suspect]
     Indication: HYPERCHOLESTEROLAEMIA
     Dosage: 40 MG, QD
     Route: 048
     Dates: start: 20090818, end: 20090929
  3. SANDIMMUNE [Suspect]
     Dosage: UNK
     Route: 065
     Dates: start: 20091027, end: 20100112

REACTIONS (4)
  - HEPATOTOXICITY [None]
  - MYOPATHY [None]
  - DRUG INTERACTION [None]
  - DRUG INEFFECTIVE [None]
